FAERS Safety Report 5267583-3 (Version None)
Quarter: 2007Q1

REPORT INFORMATION
  Report Type: 
  Country: None (occurrence: None)
  Receive Date: 20070316
  Receipt Date: 20070308
  Transmission Date: 20070707
  Serious: Yes (Hospitalization)
  Sender: FDA-Public Use
  Company Number: FR-BOEHRINGER INGELHEIM PHARMACEUTICALS, INC.-2007-FF-00328FF

PATIENT
  Age: 62 Year
  Sex: Female
  Weight: 45 kg

DRUGS (6)
  1. VIRAMUNE [Suspect]
     Route: 048
     Dates: start: 20070120, end: 20070130
  2. APTIVUS [Suspect]
     Route: 048
     Dates: start: 20070120
  3. DEPAKENE [Concomitant]
  4. LEXOMIL [Concomitant]
  5. IMOVANE [Concomitant]
  6. TRUVADA [Concomitant]
     Dates: start: 20070120

REACTIONS (2)
  - RASH MACULO-PAPULAR [None]
  - SKIN BURNING SENSATION [None]
